FAERS Safety Report 14023492 (Version 1)
Quarter: 2017Q3

REPORT INFORMATION
  Report Type: Spontaneous
  Country: US (occurrence: US)
  Receive Date: 20170928
  Receipt Date: 20170928
  Transmission Date: 20171128
  Serious: No
  Sender: FDA-Public Use
  Company Number: US-SA-2016SA215368

PATIENT
  Age: 54 Year
  Sex: Male

DRUGS (5)
  1. AUBAGIO [Suspect]
     Active Substance: TERIFLUNOMIDE
     Route: 048
  2. MIRAPEX [Concomitant]
     Active Substance: PRAMIPEXOLE DIHYDROCHLORIDE
  3. AMBIEN [Concomitant]
     Active Substance: ZOLPIDEM TARTRATE
  4. AMPYRA [Concomitant]
     Active Substance: DALFAMPRIDINE
  5. BACLOFEN. [Concomitant]
     Active Substance: BACLOFEN

REACTIONS (3)
  - Oropharyngeal pain [Unknown]
  - Hypoaesthesia [Unknown]
  - Gait disturbance [Unknown]
